FAERS Safety Report 5135495-1 (Version None)
Quarter: 2006Q4

REPORT INFORMATION
  Report Type: 
  Country: None (occurrence: None)
  Receive Date: 20061026
  Receipt Date: 20060801
  Transmission Date: 20070319
  Serious: Yes (Hospitalization)
  Sender: FDA-Public Use
  Company Number: SE-JNJFOC-20061002305

PATIENT
  Age: 15 Year
  Sex: Female

DRUGS (2)
  1. CONCERTA [Suspect]
     Dosage: 10 DOSES = 10 TABLETS
     Route: 048
  2. CONCERTA [Suspect]
     Indication: DRUG USE FOR UNKNOWN INDICATION
     Route: 048

REACTIONS (7)
  - HYPERTENSION [None]
  - MIOSIS [None]
  - OVERDOSE [None]
  - STRESS [None]
  - TACHYCARDIA [None]
  - TREMOR [None]
  - VOMITING [None]
